FAERS Safety Report 8188813-4 (Version None)
Quarter: 2012Q1

REPORT INFORMATION
  Report Type: 
  Country: None (occurrence: None)
  Receive Date: 20120306
  Receipt Date: 20120228
  Transmission Date: 20120608
  Serious: Yes (Hospitalization)
  Sender: FDA-Public Use
  Company Number: US-CELGENEUS-163-21880-11120399

PATIENT
  Age: 72 Year
  Sex: Male
  Weight: 83.082 kg

DRUGS (27)
  1. REVLIMID [Suspect]
     Indication: MANTLE CELL LYMPHOMA
     Route: 048
     Dates: start: 20080101, end: 20100920
  2. MAGNESIUM [Concomitant]
     Route: 065
  3. DEXILANT [Concomitant]
     Route: 065
  4. TORISEL [Suspect]
     Indication: MANTLE CELL LYMPHOMA
     Dosage: 25 MILLIGRAM
     Route: 041
     Dates: start: 20070111, end: 20071206
  5. RITUXIMAB [Suspect]
     Indication: MANTLE CELL LYMPHOMA
     Dosage: 375 MILLIGRAM/SQ. METER
     Route: 041
     Dates: start: 20070111, end: 20071018
  6. CRANBERRY [Concomitant]
     Route: 065
  7. PAXIL [Concomitant]
     Route: 065
  8. LUTEIN [Concomitant]
     Route: 065
  9. MULTI-VITAMINS [Concomitant]
     Route: 065
  10. NIACIN [Concomitant]
     Route: 065
  11. ASPIRIN [Concomitant]
     Route: 065
  12. VITAMIN B COMPLEX CAP [Concomitant]
     Route: 065
  13. MELATONIN [Concomitant]
     Route: 065
  14. CLONAZEPAM [Concomitant]
     Route: 065
  15. POTASSIUM CHLORIDE [Concomitant]
     Route: 065
  16. CRUCIFEROUS CURCUMIN [Concomitant]
     Route: 065
  17. COENZYME Q10 [Concomitant]
     Route: 065
  18. POLYGAM S/D [Concomitant]
     Indication: HYPOGAMMAGLOBULINAEMIA
     Route: 065
  19. SYNTHROID [Concomitant]
     Route: 065
  20. FERROUS GLUCONATE [Concomitant]
     Route: 065
  21. VITAMIN E [Concomitant]
     Route: 065
  22. IPRATROPIUM BROMIDE [Concomitant]
     Route: 065
  23. FISH OIL [Concomitant]
     Route: 065
  24. CIMETIDINE [Concomitant]
     Route: 065
  25. GREEN TEA EXTRACT [Concomitant]
     Route: 065
  26. SILYMARIN [Concomitant]
     Route: 065
  27. VITAMIN D [Concomitant]
     Route: 065

REACTIONS (1)
  - MYELODYSPLASTIC SYNDROME [None]
